FAERS Safety Report 9739468 (Version 3)
Quarter: 2014Q2

REPORT INFORMATION
  Report Type: Report from Study
  Country: JP (occurrence: JP)
  Receive Date: 20131209
  Receipt Date: 20140527
  Transmission Date: 20141212
  Serious: Yes (Other)
  Sender: FDA-Public Use
  Company Number: JP-UCBSA-105192

PATIENT
  Age: 80 Year
  Sex: Female

DRUGS (4)
  1. CIMZIA [Suspect]
     Indication: RHEUMATOID ARTHRITIS
     Dosage: STRENGTH:200 MG SYRINGE
     Route: 058
     Dates: start: 20130911, end: 20131017
  2. CIMZIA [Suspect]
     Indication: RHEUMATOID ARTHRITIS
     Dosage: 200 MG SYRINGE
     Route: 058
     Dates: start: 20131031, end: 20131031
  3. RIMATIL [Concomitant]
     Dosage: DAILY DOSE: 100 MG
     Route: 048
     Dates: start: 20130105, end: 20131031
  4. CELECOX [Concomitant]
     Route: 048
     Dates: start: 20130105, end: 20131031

REACTIONS (1)
  - Urticaria [Recovered/Resolved]
